FAERS Safety Report 8139789-7 (Version None)
Quarter: 2012Q1

REPORT INFORMATION
  Report Type: 
  Country: None (occurrence: None)
  Receive Date: 20120215
  Receipt Date: 20120207
  Transmission Date: 20120608
  Serious: Yes (Death, Hospitalization)
  Sender: FDA-Public Use
  Company Number: US-CELGENEUS-163-21880-11102423

PATIENT
  Sex: Male

DRUGS (7)
  1. JANUMET [Concomitant]
     Dosage: 50MG/100MG
     Route: 065
  2. LASIX [Concomitant]
     Dosage: 40 MILLIGRAM
     Route: 065
  3. REVLIMID [Suspect]
     Dosage: 15 MILLIGRAM
     Route: 048
     Dates: start: 20111001, end: 20111108
  4. REVLIMID [Suspect]
     Indication: MULTIPLE MYELOMA
     Dosage: 25 MILLIGRAM
     Route: 048
     Dates: start: 20110901
  5. HUMALOG [Concomitant]
     Route: 065
  6. LEVEMIR [Concomitant]
     Dosage: 100 IU (INTERNATIONAL UNIT)
     Route: 065
  7. HYZAAR [Concomitant]
     Dosage: 100-25MG
     Route: 065

REACTIONS (5)
  - NEUTROPHIL COUNT DECREASED [None]
  - WHITE BLOOD CELL COUNT DECREASED [None]
  - MULTI-ORGAN FAILURE [None]
  - PLATELET COUNT DECREASED [None]
  - RED BLOOD CELL COUNT DECREASED [None]
